FAERS Safety Report 7409052-8 (Version None)
Quarter: 2011Q2

REPORT INFORMATION
  Report Type: 
  Country: None (occurrence: None)
  Receive Date: 20110412
  Receipt Date: 20110408
  Transmission Date: 20111010
  Serious: Yes (Life-Threatening)
  Sender: FDA-Public Use
  Company Number: PHHY2011GB29111

PATIENT
  Age: 56 Year
  Sex: Female
  Weight: 57.15 kg

DRUGS (8)
  1. CLOPIDOGREL [Concomitant]
  2. METFORMIN [Suspect]
     Indication: TYPE 2 DIABETES MELLITUS
     Dates: start: 20080301
  3. NITROGLYCERIN [Concomitant]
  4. OMEPRAZOLE [Concomitant]
  5. ATORVASTATIN [Concomitant]
  6. GLICLAZIDE [Concomitant]
  7. BISOPROLOL FUMARATE [Concomitant]
  8. ASPIRIN [Concomitant]

REACTIONS (3)
  - HYPOGLYCAEMIA [None]
  - LACTIC ACIDOSIS [None]
  - RENAL FAILURE ACUTE [None]
